FAERS Safety Report 20771039 (Version 2)
Quarter: 2022Q2

REPORT INFORMATION
  Report Type: Spontaneous
  Country: US (occurrence: US)
  Receive Date: 20220429
  Receipt Date: 20220524
  Transmission Date: 20220721
  Serious: No
  Sender: FDA-Public Use
  Company Number: US-TEVA-2022-US-2024715

PATIENT
  Sex: Female

DRUGS (1)
  1. AGGRENOX [Suspect]
     Active Substance: ASPIRIN\DIPYRIDAMOLE
     Indication: Product used for unknown indication
     Dosage: AGGRENOX SINCE APPROXIMATELY 2016 OR 2017
     Route: 065

REACTIONS (4)
  - Abnormal faeces [Unknown]
  - Flatulence [Unknown]
  - Eructation [Unknown]
  - Product after taste [Unknown]

NARRATIVE: CASE EVENT DATE: 20220101
